FAERS Safety Report 7510244-8 (Version None)
Quarter: 2011Q2

REPORT INFORMATION
  Report Type: 
  Country: None (occurrence: None)
  Receive Date: 20110527
  Receipt Date: 20110523
  Transmission Date: 20111010
  Serious: Yes (Other)
  Sender: FDA-Public Use
  Company Number: US-UCBSA-032360

PATIENT
  Sex: Female
  Weight: 62 kg

DRUGS (7)
  1. CLONAZEPAM [Concomitant]
     Indication: ANXIETY
     Route: 048
  2. METOCLOPRAMIDE [Concomitant]
     Indication: MIGRAINE
     Dosage: UPTO 3 X DAY AS NEEDED
     Route: 048
  3. TOPIRAMATE [Concomitant]
     Indication: MIGRAINE
     Route: 048
  4. CYCLOBENZAPRINE [Concomitant]
     Indication: MIGRAINE
     Dosage: UPTO 3 X DAY AS NEEDED
     Route: 048
  5. CIMZIA [Suspect]
     Indication: CROHN'S DISEASE
     Route: 058
     Dates: start: 20100601, end: 20110401
  6. VENLAFAXINE [Concomitant]
     Indication: DEPRESSION
     Route: 048
  7. MERCAPTOPURINE [Concomitant]
     Indication: CROHN'S DISEASE
     Route: 048

REACTIONS (3)
  - OVARIAN CYST [None]
  - SMEAR CERVIX ABNORMAL [None]
  - SKIN LESION [None]
